FAERS Safety Report 23354683 (Version 2)
Quarter: 2024Q1

REPORT INFORMATION
  Report Type: Spontaneous
  Country: BR (occurrence: BR)
  Receive Date: 20240101
  Receipt Date: 20240103
  Transmission Date: 20240410
  Serious: Yes (Other)
  Sender: FDA-Public Use
  Company Number: BR-PFIZER INC-2016324699

PATIENT
  Sex: Female
  Weight: 58 kg

DRUGS (11)
  1. ALPRAZOLAM [Suspect]
     Active Substance: ALPRAZOLAM
     Indication: Depression
     Dosage: 2 MG, DAILY
     Route: 048
  2. ALPRAZOLAM [Suspect]
     Active Substance: ALPRAZOLAM
     Indication: Anxiety
     Dosage: 1 DOSAGE FORM
     Route: 065
  3. ALPRAZOLAM [Suspect]
     Active Substance: ALPRAZOLAM
     Indication: Panic attack
     Dosage: 1 MILLIGRAM, BID (1 TABLET IN THE MORNING AND 1 TABLET AT NIGHT)
     Route: 065
  4. ALPRAZOLAM [Suspect]
     Active Substance: ALPRAZOLAM
     Indication: Serotonin deficiency
  5. AMITRIPTYLINE HYDROCHLORIDE [Concomitant]
     Active Substance: AMITRIPTYLINE HYDROCHLORIDE
     Indication: Antidepressant therapy
     Dosage: 75 MG, 2X/DAY (MORNING AND NIGHT) REGIMEN DOSE UNIT: MILLIGRAM
     Route: 065
  6. AMITRIPTYLINE HYDROCHLORIDE [Concomitant]
     Active Substance: AMITRIPTYLINE HYDROCHLORIDE
     Indication: Anxiety
  7. AMITRIPTYLINE HYDROCHLORIDE [Concomitant]
     Active Substance: AMITRIPTYLINE HYDROCHLORIDE
     Indication: Panic attack
  8. AMITRIPTYLINE HYDROCHLORIDE [Concomitant]
     Active Substance: AMITRIPTYLINE HYDROCHLORIDE
     Indication: Serotonin deficiency
  9. EUDOK [Concomitant]
     Indication: Anxiety
     Dosage: UNK
     Route: 065
  10. EUDOK [Concomitant]
     Indication: Panic attack
  11. EUDOK [Concomitant]
     Indication: Serotonin deficiency

REACTIONS (18)
  - Drug dependence [Not Recovered/Not Resolved]
  - Emotional disorder [Unknown]
  - Blood cholesterol [Not Recovered/Not Resolved]
  - Osteoporosis [Not Recovered/Not Resolved]
  - Tachycardia [Not Recovered/Not Resolved]
  - Feeling abnormal [Unknown]
  - Feeling of despair [Not Recovered/Not Resolved]
  - Product dose omission issue [Unknown]
  - Product substitution issue [Unknown]
  - Drug ineffective [Unknown]
  - Negative thoughts [Not Recovered/Not Resolved]
  - Burning sensation [Not Recovered/Not Resolved]
  - Pain in extremity [Unknown]
  - Body height decreased [Not Recovered/Not Resolved]
  - Food craving [Not Recovered/Not Resolved]
  - Tremor [Unknown]
  - Memory impairment [Unknown]
  - Panic attack [Not Recovered/Not Resolved]

NARRATIVE: CASE EVENT DATE: 20140101
